FAERS Safety Report 17916288 (Version 1)
Quarter: 2020Q2

REPORT INFORMATION
  Report Type: Spontaneous
  Country: US (occurrence: US)
  Receive Date: 20200619
  Receipt Date: 20200619
  Transmission Date: 20200714
  Serious: Yes (Disabling)
  Sender: FDA-Public Use
  Company Number: None

PATIENT
  Age: 9 Year
  Sex: Male
  Weight: 30.15 kg

DRUGS (8)
  1. VYVANSE [Suspect]
     Active Substance: LISDEXAMFETAMINE DIMESYLATE
  2. VYVANSE [Concomitant]
     Active Substance: LISDEXAMFETAMINE DIMESYLATE
  3. KETOTIFEN EYE DROPS [Concomitant]
  4. FIBER SUPPLEMENT [Concomitant]
     Active Substance: DIETARY SUPPLEMENT
  5. CLONIDINE ER [Concomitant]
     Active Substance: CLONIDINE
  6. CLONIDINE IR [Concomitant]
  7. CITALOPRAM [Suspect]
     Active Substance: CITALOPRAM HYDROBROMIDE
     Indication: ANXIETY
     Route: 048
     Dates: start: 20200408, end: 20200420
  8. ATOMOXETINE. [Concomitant]
     Active Substance: ATOMOXETINE HYDROCHLORIDE

REACTIONS (11)
  - Anxiety [None]
  - Somnolence [None]
  - Depressed mood [None]
  - Nausea [None]
  - Tic [None]
  - Myalgia [None]
  - Hallucination, auditory [None]
  - Suicidal ideation [None]
  - Poor quality sleep [None]
  - Disturbance in attention [None]
  - Crying [None]

NARRATIVE: CASE EVENT DATE: 20200420
